FAERS Safety Report 21781183 (Version 1)
Quarter: 2022Q4

REPORT INFORMATION
  Report Type: Spontaneous
  Country: RO (occurrence: RO)
  Receive Date: 20221227
  Receipt Date: 20221227
  Transmission Date: 20230113
  Serious: Yes (Congenital Anomaly, Other)
  Sender: FDA-Public Use
  Company Number: RO-AUROBINDO-AUR-APL-2022-055002

PATIENT
  Sex: Male
  Weight: 3.32 kg

DRUGS (2)
  1. AMOXICILLIN\CLAVULANIC ACID [Suspect]
     Active Substance: AMOXICILLIN\CLAVULANIC ACID
     Indication: Urinary tract infection
     Dosage: UNK
     Route: 064
  2. CEFUROXIME [Suspect]
     Active Substance: CEFUROXIME
     Indication: Urinary tract infection
     Dosage: UNK
     Route: 064

REACTIONS (27)
  - Neonatal hypoxia [Unknown]
  - Hypotonia neonatal [Unknown]
  - Cleft palate [Unknown]
  - Otospondylomegaepiphyseal dysplasia [Unknown]
  - Congenital oral malformation [Unknown]
  - Acute respiratory distress syndrome [Unknown]
  - Epilepsy [Unknown]
  - External auditory canal atresia [Unknown]
  - Ankyloglossia congenital [Unknown]
  - Low set ears [Unknown]
  - Bradycardia neonatal [Unknown]
  - Tachypnoea [Unknown]
  - Micrognathia [Unknown]
  - Microglossia [Unknown]
  - Preauricular cyst [Unknown]
  - Nodule [Unknown]
  - Anomaly of external ear congenital [Unknown]
  - Asymmetric crying facies [Unknown]
  - Atrial septal defect [Unknown]
  - Periorbital fat herniation [Unknown]
  - Agitation neonatal [Unknown]
  - Heart disease congenital [Unknown]
  - General physical health deterioration [Unknown]
  - Congenital skin dimples [Unknown]
  - Dysphagia [Unknown]
  - Dyskinesia neonatal [Unknown]
  - Neonatal dyspnoea [Unknown]
